FAERS Safety Report 7384075-6 (Version None)
Quarter: 2011Q1

REPORT INFORMATION
  Report Type: 
  Country: None (occurrence: None)
  Receive Date: 20110330
  Receipt Date: 20110324
  Transmission Date: 20110831
  Serious: Yes (Hospitalization)
  Sender: FDA-Public Use
  Company Number: A0773164A

PATIENT
  Age: 52 Year
  Sex: Female
  Weight: 104.5 kg

DRUGS (10)
  1. LOPRESSOR [Concomitant]
  2. METOPROLOL [Concomitant]
  3. GLUCOVANCE [Concomitant]
  4. LASIX [Concomitant]
  5. GLYBURIDE [Concomitant]
  6. NORVASC [Concomitant]
  7. AVANDIA [Suspect]
     Indication: DIABETES MELLITUS
     Dosage: 8MG PER DAY
     Route: 048
     Dates: start: 20041218, end: 20070928
  8. TOPROL-XL [Concomitant]
  9. PLAVIX [Concomitant]
  10. METFORMIN [Concomitant]

REACTIONS (4)
  - ATRIAL FIBRILLATION [None]
  - CARDIAC FAILURE CONGESTIVE [None]
  - CORONARY ARTERY DISEASE [None]
  - PAIN [None]
